FAERS Safety Report 4354836-6 (Version None)
Quarter: 2004Q2

REPORT INFORMATION
  Report Type: 
  Country: None (occurrence: None)
  Receive Date: 20040507
  Receipt Date: 20040506
  Transmission Date: 20050107
  Serious: No
  Sender: FDA-Public Use
  Company Number: US-GLAXOSMITHKLINE-A0509822A

PATIENT
  Age: 24 Year
  Sex: Male

DRUGS (2)
  1. WELLBUTRIN [Suspect]
     Indication: DEPRESSION
     Dosage: 150MG SEE DOSAGE TEXT
     Route: 048
  2. ALPRAZOLAM [Concomitant]

REACTIONS (3)
  - CONFUSIONAL STATE [None]
  - MEDICATION ERROR [None]
  - NERVOUSNESS [None]
